FAERS Safety Report 4974119-0 (Version None)
Quarter: 2006Q1

REPORT INFORMATION
  Report Type: 
  Country: None (occurrence: None)
  Receive Date: 20060130
  Receipt Date: 20050808
  Transmission Date: 20060701
  Serious: No
  Sender: FDA-Public Use
  Company Number: COT_0285_2005

PATIENT
  Age: 72 Year
  Sex: Female
  Weight: 67.1324 kg

DRUGS (18)
  1. VENTAVIS [Suspect]
     Indication: PULMONARY HYPERTENSION
     Dosage: 2.5 MCG ONCE IH
     Dates: start: 20050518, end: 20050518
  2. VENTAVIS [Suspect]
     Indication: PULMONARY HYPERTENSION
     Dosage: 5 MCG 6TO9X/DAY IH
     Dates: start: 20050518
  3. VENTAVIS [Suspect]
     Indication: PULMONARY HYPERTENSION
     Dosage: 5 MCG 6TO9X/DAY IH
     Dates: start: 20050518
  4. VENTAVIS [Suspect]
     Indication: PULMONARY HYPERTENSION
     Dosage: 5 MCG 6TO9X/DAY IH
     Dates: start: 20050518
  5. VENTAVIS [Suspect]
     Indication: PULMONARY HYPERTENSION
     Dosage: 5 MCG 6TO9X/DAY IH
     Dates: start: 20050518
  6. VENTAVIS [Suspect]
     Indication: PULMONARY HYPERTENSION
     Dosage: 5 MCG 6TO9X/DAY IH
     Dates: start: 20050518
  7. VENTAVIS [Suspect]
     Indication: PULMONARY HYPERTENSION
     Dosage: 5 MCG 6TO9X/DAY IH
     Dates: start: 20050518
  8. REMODULIN [Concomitant]
  9. SILDENAFIL [Concomitant]
  10. TRACLEER [Concomitant]
  11. TOPROL-XL [Concomitant]
  12. KLON-CON [Concomitant]
  13. SYNTHROID [Concomitant]
  14. TORSEMIDE [Concomitant]
  15. ALLOPURINOL [Concomitant]
  16. WARFARIN SODIUM [Concomitant]
  17. AMBIEN [Concomitant]
  18. PREDNISONE [Concomitant]

REACTIONS (3)
  - DIZZINESS [None]
  - LIP PAIN [None]
  - ORAL DISCOMFORT [None]
